FAERS Safety Report 9638677 (Version 1)
Quarter: 2013Q4

REPORT INFORMATION
  Report Type: Spontaneous
  Country: US (occurrence: US)
  Receive Date: 20131022
  Receipt Date: 20131022
  Transmission Date: 20140711
  Serious: No
  Sender: FDA-Public Use
  Company Number: US-BRISTOL-MYERS SQUIBB COMPANY-19346139

PATIENT
  Age: 87 Year
  Sex: Male
  Weight: 70.29 kg

DRUGS (11)
  1. ELIQUIS [Suspect]
     Indication: ATRIAL FIBRILLATION
     Dosage: TAKEN FOR A MONTH.(RECEIVED A FREE 30 DAY TRIAL ).
  2. ASPIRIN [Suspect]
     Indication: PAIN
  3. DILTIAZEM HCL [Concomitant]
     Indication: PAIN
  4. FINASTERIDE [Concomitant]
     Indication: PAIN
  5. HYDROCODONE [Concomitant]
     Indication: PAIN
     Dosage: 1DF=10-325 MG .
  6. IRON TABLETS [Concomitant]
     Dosage: 1DF=325-NOS
  7. MULTIVITAMIN [Concomitant]
  8. NEPHRO-VITE [Concomitant]
  9. NIACIN [Concomitant]
  10. REQUIP [Concomitant]
  11. OMEPRAZOLE [Concomitant]

REACTIONS (1)
  - Haemorrhage [Recovered/Resolved]
